FAERS Safety Report 5712833-X (Version None)
Quarter: 2008Q2

REPORT INFORMATION
  Report Type: 
  Country: None (occurrence: None)
  Receive Date: 20080422
  Receipt Date: 20080414
  Transmission Date: 20081010
  Serious: Yes (Other)
  Sender: FDA-Public Use
  Company Number: A0720908A

PATIENT
  Age: 57 Year
  Sex: Female
  Weight: 78.02 kg

DRUGS (24)
  1. LOVAZA [Suspect]
     Dosage: 4G PER DAY
     Dates: start: 20070301, end: 20070924
  2. AMICAR [Suspect]
     Indication: DRUG USE FOR UNKNOWN INDICATION
     Dosage: 4G PER DAY
     Route: 048
     Dates: start: 20070301, end: 20070924
  3. LEVOTHYROXINE SODIUM [Concomitant]
     Indication: DRUG USE FOR UNKNOWN INDICATION
  4. GEMFIBROZIL [Concomitant]
     Indication: DRUG USE FOR UNKNOWN INDICATION
  5. ESTROGEN [Concomitant]
     Indication: DRUG USE FOR UNKNOWN INDICATION
  6. METFORMIN HCL [Concomitant]
     Indication: DRUG USE FOR UNKNOWN INDICATION
  7. CINNAMON [Concomitant]
     Indication: DRUG USE FOR UNKNOWN INDICATION
  8. ASPIRIN [Concomitant]
     Indication: DRUG USE FOR UNKNOWN INDICATION
  9. COENZYME Q10 [Concomitant]
     Indication: DRUG USE FOR UNKNOWN INDICATION
  10. POTASSIUM CHLORIDE [Concomitant]
     Indication: DRUG USE FOR UNKNOWN INDICATION
  11. GARLIC [Concomitant]
     Indication: DRUG USE FOR UNKNOWN INDICATION
  12. CLARITIN [Concomitant]
     Indication: DRUG USE FOR UNKNOWN INDICATION
     Dosage: 20MG PER DAY
  13. MULTI-VITAMIN [Concomitant]
     Indication: DRUG USE FOR UNKNOWN INDICATION
  14. REQUIP [Concomitant]
     Indication: DRUG USE FOR UNKNOWN INDICATION
  15. ZETIA [Concomitant]
     Indication: DRUG USE FOR UNKNOWN INDICATION
  16. ZOLOFT [Concomitant]
  17. BETA CAROTENE [Concomitant]
  18. VITAMIN E [Concomitant]
  19. FLAX SEED [Concomitant]
  20. ASCORBIC ACID [Concomitant]
  21. MAGNESIUM [Concomitant]
  22. FOLIC ACID [Concomitant]
  23. LORATADINE [Concomitant]
  24. ZANTAC [Concomitant]

REACTIONS (9)
  - DRUG DISPENSING ERROR [None]
  - GROIN PAIN [None]
  - HEADACHE [None]
  - INTRACRANIAL ANEURYSM [None]
  - MEDICATION ERROR [None]
  - MIGRAINE [None]
  - NAUSEA [None]
  - NIGHT SWEATS [None]
  - PAIN IN EXTREMITY [None]
